FAERS Safety Report 13926627 (Version 1)
Quarter: 2017Q3

REPORT INFORMATION
  Report Type: Spontaneous
  Country: BR (occurrence: BR)
  Receive Date: 20170831
  Receipt Date: 20170831
  Transmission Date: 20171127
  Serious: Yes (Death, Hospitalization, Other)
  Sender: FDA-Public Use
  Company Number: BR-GILEAD-2017-0290879

PATIENT
  Age: 67 Year
  Sex: Male
  Weight: 64 kg

DRUGS (7)
  1. DAKLINZA [Concomitant]
     Active Substance: DACLATASVIR
     Indication: HEPATITIS C
     Dosage: UNK
     Dates: start: 20160909, end: 20161201
  2. SOVALDI [Suspect]
     Active Substance: SOFOSBUVIR
     Indication: HEPATITIS C
     Dosage: 400 MG, QD
     Route: 065
     Dates: start: 20160909, end: 20161201
  3. RIBAVIRIN. [Concomitant]
     Active Substance: RIBAVIRIN
     Indication: HEPATITIS C
  4. NEOMYCIN [Concomitant]
     Active Substance: NEOMYCIN
  5. OMEPRAZOLE. [Concomitant]
     Active Substance: OMEPRAZOLE
  6. NORFLOXACIN [Concomitant]
     Active Substance: NORFLOXACIN
  7. VITAMIN D3 [Concomitant]
     Active Substance: CHOLECALCIFEROL

REACTIONS (9)
  - Abdominal pain [Not Recovered/Not Resolved]
  - Peritonitis bacterial [Recovered/Resolved]
  - Liver transplant [Recovered/Resolved]
  - Cholecystectomy [Recovered/Resolved]
  - Death [Fatal]
  - Epilepsy [Unknown]
  - Anaemia [Unknown]
  - Encephalitis [Unknown]
  - Encephalitis autoimmune [Unknown]

NARRATIVE: CASE EVENT DATE: 20160928
